FAERS Safety Report 8566968-7 (Version None)
Quarter: 2012Q3

REPORT INFORMATION
  Report Type: 
  Country: None (occurrence: None)
  Receive Date: 20120803
  Receipt Date: 20110930
  Transmission Date: 20120928
  Serious: No
  Sender: FDA-Public Use
  Company Number: US-ABBOTT-11P-163-0859816-00

PATIENT
  Sex: Male
  Weight: 122.58 kg

DRUGS (5)
  1. NIASPAN [Suspect]
     Dosage: HAS BEEN TAKING FOR 2 MONTHS
     Dates: start: 20110701
  2. DIABETES [Concomitant]
     Indication: PRODUCT USED FOR UNKNOWN INDICATION
  3. TRILIPIX [Concomitant]
     Indication: PRODUCT USED FOR UNKNOWN INDICATION
  4. NIASPAN [Suspect]
     Indication: BLOOD TRIGLYCERIDES INCREASED
     Dosage: DISCONTINUED, THEN RESTARTED JUL 2011
  5. GOUT [Concomitant]
     Indication: PRODUCT USED FOR UNKNOWN INDICATION

REACTIONS (1)
  - FLUSHING [None]
